FAERS Safety Report 5342006-4 (Version None)
Quarter: 2007Q2

REPORT INFORMATION
  Report Type: 
  Country: None (occurrence: None)
  Receive Date: 20070601
  Receipt Date: 20070527
  Transmission Date: 20071010
  Serious: Yes (Death, Hospitalization)
  Sender: FDA-Public Use
  Company Number: TW-AVENTIS-200714098GDDC

PATIENT
  Age: 75 Year
  Sex: Female

DRUGS (13)
  1. ARAVA [Suspect]
     Indication: RHEUMATOID ARTHRITIS
     Route: 048
     Dates: start: 20070112
  2. PLAQUENIL                          /00072601/ [Concomitant]
     Route: 048
     Dates: start: 20050708, end: 20070318
  3. PLENDIL [Concomitant]
     Indication: HYPERTENSION
     Route: 048
     Dates: start: 20050708, end: 20070318
  4. PARAN [Concomitant]
     Route: 048
     Dates: start: 20041007, end: 20070302
  5. MOBIC [Concomitant]
     Indication: OSTEOARTHRITIS
     Dosage: DOSE: 1 TABLET
     Route: 048
     Dates: start: 20060425, end: 20070318
  6. BIO-CAL [Concomitant]
     Dosage: DOSE: 1 TABLET
     Route: 048
     Dates: start: 20041031, end: 20070302
  7. A.M.D. [Concomitant]
     Dosage: DOSE: 1 TABLET
     Route: 048
     Dates: start: 20050708, end: 20070318
  8. A.M.D. [Concomitant]
     Dosage: DOSE: 1 TABLET
     Route: 048
     Dates: start: 20050708, end: 20070318
  9. A.M.D. [Concomitant]
     Dosage: DOSE: 1 TABLET
     Route: 048
     Dates: start: 20050708, end: 20070318
  10. GLIDIAB                            /00390201/ [Concomitant]
     Route: 048
     Dates: start: 20050708, end: 20070318
  11. GLIBUDON [Concomitant]
     Route: 048
     Dates: start: 20050830, end: 20070318
  12. TAKEPRON [Concomitant]
     Indication: GASTRIC ULCER
     Route: 048
     Dates: start: 20070309, end: 20070318
  13. COMPESOLON [Concomitant]
     Route: 048
     Dates: start: 20050708, end: 20070318

REACTIONS (3)
  - CARDIOVASCULAR DISORDER [None]
  - PULMONARY FIBROSIS [None]
  - RESPIRATORY FAILURE [None]
